FAERS Safety Report 4338586-8 (Version None)
Quarter: 2004Q2

REPORT INFORMATION
  Report Type: 
  Country: None (occurrence: None)
  Receive Date: 20040407
  Receipt Date: 20040325
  Transmission Date: 20050107
  Serious: Yes (Other)
  Sender: FDA-Public Use
  Company Number: 2004-DE-01526GD

PATIENT
  Age: 9 Year
  Sex: Female

DRUGS (6)
  1. METHOTREXATE [Suspect]
     Indication: CARDIAC DISORDER
     Dosage: 10 MG/ME2 (WEEKLY), PO
     Route: 048
  2. METHOTREXATE [Suspect]
     Indication: SPONDYLITIS
     Dosage: 10 MG/ME2 (WEEKLY), PO
     Route: 048
  3. METHYLPREDNISOLONE [Suspect]
     Indication: CARDIAC DISORDER
     Dosage: 30 MG/KG
  4. METHYLPREDNISOLONE [Suspect]
     Indication: SPONDYLITIS
     Dosage: 30 MG/KG
  5. ENALAPRIL MALEATE [Concomitant]
  6. FUROSEMIDE [Concomitant]

REACTIONS (6)
  - AORTIC VALVE INCOMPETENCE [None]
  - CARDIAC DISORDER [None]
  - DISEASE PROGRESSION [None]
  - INFLAMMATION [None]
  - MITRAL VALVE INCOMPETENCE [None]
  - NECROSIS [None]
